FAERS Safety Report 8197424-6 (Version None)
Quarter: 2012Q1

REPORT INFORMATION
  Report Type: 
  Country: None (occurrence: None)
  Receive Date: 20120309
  Receipt Date: 20120305
  Transmission Date: 20120608
  Serious: Yes (Other)
  Sender: FDA-Public Use
  Company Number: US-ROCHE-1045538

PATIENT
  Age: 3 Year
  Sex: Male

DRUGS (15)
  1. TRETINOIN [Suspect]
     Dosage: ADDITIONAL COURSES DURING CONSOLIDATION TREATMENT
  2. DAUNORUBICIN HCL [Concomitant]
     Indication: ACUTE PROMYELOCYTIC LEUKAEMIA
     Dosage: SIMILAR TO 50 MG/M2/DOSE ON DAYS 3, 4, 5, 6)
  3. ARSENIC TRIOXIDE [Concomitant]
     Indication: ACUTE PROMYELOCYTIC LEUKAEMIA
     Dosage: CONSOLIDATION TREATMENT
  4. AMIKACIN [Concomitant]
  5. CYTARABINE [Concomitant]
     Dosage: SIMILAR TO 3.3 MG/KG/DOSE ON DAYS 3, 4, 5, 6, 7, 8, 9
  6. VANCOMYCIN [Concomitant]
  7. ALLOPURINOL [Concomitant]
  8. MEROPENEM [Concomitant]
  9. TRETINOIN [Suspect]
     Indication: ACUTE PROMYELOCYTIC LEUKAEMIA
     Dosage: INDUCTION PHASE; (12.5 MG/M2/DOSE)
  10. TRETINOIN [Suspect]
     Dosage: RESTARTED, HELD FOR 3 DAYS
  11. PENTAMIDINE [Concomitant]
  12. CEFEPIME [Concomitant]
  13. SULFAMETHOXAZOLE AND TRIMETHOPRIM [Concomitant]
  14. VORICONAZOLE [Concomitant]
  15. FLUCONAZOLE [Concomitant]

REACTIONS (2)
  - PROTEINURIA [None]
  - RETINOIC ACID SYNDROME [None]
